FAERS Safety Report 6269783-2 (Version None)
Quarter: 2009Q3

REPORT INFORMATION
  Report Type: 
  Country: None (occurrence: None)
  Receive Date: 20090716
  Receipt Date: 20090714
  Transmission Date: 20100115
  Serious: Yes (Other)
  Sender: FDA-Public Use
  Company Number: US-JNJFOC-20090700592

PATIENT
  Age: 47 Year
  Sex: Male

DRUGS (1)
  1. LEVAQUIN [Suspect]
     Indication: BRONCHITIS
     Route: 048

REACTIONS (4)
  - PARAESTHESIA [None]
  - PARALYSIS [None]
  - PERONEAL NERVE PALSY [None]
  - RADIAL NERVE PALSY [None]
